FAERS Safety Report 4901538-0 (Version None)
Quarter: 2006Q1

REPORT INFORMATION
  Report Type: 
  Country: None (occurrence: None)
  Receive Date: 20060206
  Receipt Date: 20050121
  Transmission Date: 20060701
  Serious: No
  Sender: FDA-Public Use
  Company Number: US-BRISTOL-MYERS SQUIBB COMPANY-12835625

PATIENT
  Age: 68 Year
  Sex: Female

DRUGS (6)
  1. TAXOL [Suspect]
     Indication: BREAST CANCER
     Route: 042
     Dates: start: 20050103, end: 20050103
  2. DEXAMETHASONE TAB [Concomitant]
     Indication: PREMEDICATION
     Route: 042
  3. BENADRYL [Concomitant]
     Indication: PREMEDICATION
     Route: 042
  4. CORTISONE ACETATE TAB [Concomitant]
     Indication: PREMEDICATION
     Route: 042
  5. CALAN [Concomitant]
  6. VITAMINS [Concomitant]

REACTIONS (1)
  - RASH [None]
